FAERS Safety Report 19942341 (Version 1)
Quarter: 2021Q4

REPORT INFORMATION
  Report Type: Spontaneous
  Country: US (occurrence: US)
  Receive Date: 20211012
  Receipt Date: 20211012
  Transmission Date: 20220304
  Serious: Yes (Hospitalization, Other)
  Sender: FDA-Public Use
  Company Number: US-ORPHANEU-2021004014

PATIENT

DRUGS (12)
  1. SIGNIFOR [Suspect]
     Active Substance: PASIREOTIDE DIASPARTATE
     Indication: Pituitary-dependent Cushing^s syndrome
     Dosage: 0.9 MILLIGRAM, BID
     Route: 058
     Dates: start: 20201217, end: 202012
  2. SIGNIFOR [Suspect]
     Active Substance: PASIREOTIDE DIASPARTATE
     Dosage: 0.9 MILLIGRAM BID
     Route: 058
     Dates: start: 20210331, end: 20210929
  3. DIGOXIN [Suspect]
     Active Substance: DIGOXIN
     Indication: Atrial fibrillation
     Dosage: 1.25 MICROGRAM, EVERY DAY
     Route: 048
  4. FUROSEMIDE [Suspect]
     Active Substance: FUROSEMIDE
     Indication: Fluid retention
     Dosage: 10 MILLIGRAM, QD
  5. HYDROCORTISONE [Suspect]
     Active Substance: HYDROCORTISONE
     Indication: Adrenal insufficiency
     Dosage: 30 MILLIGRAM, QD
  6. METFORMIN [Suspect]
     Active Substance: METFORMIN HYDROCHLORIDE
     Indication: Blood glucose increased
     Dosage: 500 MILLIGRAM AS NEEDED
  7. METOPROLOL SUCCINATE [Suspect]
     Active Substance: METOPROLOL SUCCINATE
     Indication: Atrial fibrillation
     Dosage: 200 MILLIGRAM, QD
  8. POTASSIUM CHLORIDE [Suspect]
     Active Substance: POTASSIUM CHLORIDE
     Indication: Hypovitaminosis
     Dosage: 10 MILLIEQUIVALENT, QD
  9. PREDNISONE [Suspect]
     Active Substance: PREDNISONE
     Indication: Adrenal insufficiency
     Dosage: 10 MILLIGRAM, PRN
  10. VITAMIN D NOS [Suspect]
     Active Substance: VITAMIN D NOS
     Indication: Hypovitaminosis
     Dosage: 1.25 MICROGRAM, QD
     Route: 048
  11. TESTOSTERONE CYPIONATE [Suspect]
     Active Substance: TESTOSTERONE CYPIONATE
     Indication: Blood testosterone decreased
     Dosage: 100 MILLIGRAM, EVERY TWO WEEKS
     Route: 030
  12. XARELTO [Suspect]
     Active Substance: RIVAROXABAN
     Indication: Atrial fibrillation
     Dosage: 20 MILLIGRAM, QD

REACTIONS (4)
  - Dyspnoea [Unknown]
  - Neoplasm malignant [Unknown]
  - Brain neoplasm [Unknown]
  - Lung neoplasm malignant [Unknown]

NARRATIVE: CASE EVENT DATE: 20210929
